FAERS Safety Report 5918582-7 (Version None)
Quarter: 2008Q4

REPORT INFORMATION
  Report Type: 
  Country: None (occurrence: None)
  Receive Date: 20081014
  Receipt Date: 20081014
  Transmission Date: 20090506
  Serious: Yes (Other)
  Sender: FDA-Public Use
  Company Number: None

PATIENT
  Age: 64 Year
  Sex: Female
  Weight: 76.9 kg

DRUGS (14)
  1. DIGIBIND [Suspect]
     Indication: THERAPEUTIC AGENT TOXICITY
     Dosage: 120 MG ONCE IV DRIP
     Route: 041
     Dates: start: 20081009, end: 20081009
  2. ACYCLOVIR [Concomitant]
  3. CALCIUM +D [Concomitant]
  4. DILTIAZEM HCL [Concomitant]
  5. DIOVAN [Concomitant]
  6. LASIX [Concomitant]
  7. POTASSIUM CHLORIDE [Concomitant]
  8. PRAVASTATIN [Concomitant]
  9. PREDNISONE [Concomitant]
  10. SANDIMMUNE [Concomitant]
  11. DIGOXIN [Concomitant]
  12. ASCORBIC ACID [Concomitant]
  13. ASPIRIN [Concomitant]
  14. VITAMIN E [Concomitant]

REACTIONS (6)
  - ABDOMINAL PAIN [None]
  - ATRIOVENTRICULAR BLOCK COMPLETE [None]
  - BRADYCARDIA [None]
  - HYPERHIDROSIS [None]
  - HYPOTENSION [None]
  - METABOLIC ACIDOSIS [None]
